FAERS Safety Report 10864395 (Version 2)
Quarter: 2015Q1

REPORT INFORMATION
  Report Type: Spontaneous
  Country: JP (occurrence: JP)
  Receive Date: 20150224
  Receipt Date: 20150322
  Transmission Date: 20150721
  Serious: Yes (Other)
  Sender: FDA-Public Use
  Company Number: JP-009507513-1502JPN008527

PATIENT
  Age: 76 Year
  Sex: Male

DRUGS (1)
  1. ESLAX INTRAVENOUS 50MG/5.0ML [Suspect]
     Active Substance: ROCURONIUM BROMIDE
     Dosage: STRENGTH 50 MG/ 5.0 ML; DAILY DOSE UNKNOWN
     Route: 042
     Dates: start: 201402, end: 201402

REACTIONS (3)
  - Nephrogenic anaemia [Unknown]
  - Rhabdomyolysis [Unknown]
  - Acute kidney injury [Unknown]
